FAERS Safety Report 7060435-8 (Version None)
Quarter: 2010Q4

REPORT INFORMATION
  Report Type: 
  Country: None (occurrence: None)
  Receive Date: 20101025
  Receipt Date: 20101018
  Transmission Date: 20110411
  Serious: Yes (Life-Threatening, Hospitalization)
  Sender: FDA-Public Use
  Company Number: JP-NOVOPROD-312067

PATIENT
  Age: 52 Year
  Sex: Female
  Weight: 55 kg

DRUGS (6)
  1. VICTOZA [Suspect]
     Indication: TYPE 1 DIABETES MELLITUS
     Dosage: UNK
     Route: 058
     Dates: start: 20100701
  2. VICTOZA [Suspect]
     Indication: OFF LABEL USE
     Dosage: 0.6 MG, QD
     Route: 058
  3. VICTOZA [Suspect]
     Indication: DIABETES MELLITUS INADEQUATE CONTROL
  4. HUMACART 3/7 [Suspect]
     Indication: TYPE 1 DIABETES MELLITUS
     Dosage: 36 U, QD
     Route: 058
     Dates: start: 20100701
  5. CRESTOR [Concomitant]
     Dosage: 2.5 MG, UNK
     Dates: start: 20040414, end: 20100713
  6. RASILEZ                            /01763601/ [Concomitant]
     Dosage: 150 MG, QD
     Dates: start: 20100323, end: 20100713

REACTIONS (6)
  - DEHYDRATION [None]
  - DIABETIC KETOACIDOSIS [None]
  - DIARRHOEA [None]
  - MALAISE [None]
  - METABOLIC ACIDOSIS [None]
  - OFF LABEL USE [None]
